FAERS Safety Report 10388717 (Version 1)
Quarter: 2014Q1

REPORT INFORMATION
  Report Type: Spontaneous
  Country: US (occurrence: None)
  Receive Date: 20140306
  Receipt Date: 20140306
  Transmission Date: 20141002
  Serious: Yes (Other)
  Sender: FDA-Public Use
  Company Number: 163-21880-13124326

PATIENT
  Age: 84 Year
  Sex: Male
  Weight: 71.2 kg

DRUGS (8)
  1. REVLIMID [Suspect]
     Indication: PLASMA CELL MYELOMA
     Route: 048
     Dates: start: 201003, end: 2010
  2. ALKERAN (MELPHALAN) [Concomitant]
  3. FINASTERIDE (FINASTERIDE) [Concomitant]
  4. ENSURE CLEAR [Concomitant]
  5. WARFARIN SODIUM (WARFARIN SODIUM) [Concomitant]
  6. FUROSEMIDE (FUROSEMIDE) [Concomitant]
  7. NEXIUM (ESOMEPRAZOLE) [Concomitant]
  8. GABAPENTIN (GABAPENTIN) [Concomitant]

REACTIONS (1)
  - Thrombosis [None]
